FAERS Safety Report 25876364 (Version 1)
Quarter: 2025Q4

REPORT INFORMATION
  Report Type: Spontaneous
  Country: US (occurrence: US)
  Receive Date: 20251003
  Receipt Date: 20251003
  Transmission Date: 20260119
  Serious: Yes (Other)
  Sender: EPIC PHARM
  Company Number: US-EPICPHARMA-US-2025EPCSPO01114

PATIENT
  Sex: Female
  Weight: 60 kg

DRUGS (2)
  1. METFORMIN HYDROCHLORIDE [Suspect]
     Active Substance: METFORMIN HYDROCHLORIDE
     Indication: Product used for unknown indication
     Route: 065
  2. DUPIXENT [Suspect]
     Active Substance: DUPILUMAB
     Indication: Eosinophilic oesophagitis
     Route: 058

REACTIONS (6)
  - Choking [Unknown]
  - Rebound effect [Unknown]
  - Oropharyngeal pain [Unknown]
  - Oropharyngeal discomfort [Unknown]
  - Diarrhoea [Unknown]
  - Product dose omission issue [Unknown]
